FAERS Safety Report 6170852-6 (Version None)
Quarter: 2009Q2

REPORT INFORMATION
  Report Type: 
  Country: None (occurrence: None)
  Receive Date: 20090428
  Receipt Date: 20090423
  Transmission Date: 20091009
  Serious: Yes (Other)
  Sender: FDA-Public Use
  Company Number: GR-ABBOTT-08P-066-0463705-00

PATIENT
  Sex: Female
  Weight: 62 kg

DRUGS (5)
  1. KALETRA [Suspect]
     Indication: HIV INFECTION
     Route: 048
     Dates: start: 20080630, end: 20080708
  2. KALETRA [Suspect]
     Route: 048
     Dates: start: 20080711, end: 20080711
  3. COMBIVIR [Concomitant]
     Indication: HIV INFECTION
     Dosage: 1 TAB IN THE MORNING AND 1 TAB IN THE EVENING
     Route: 048
     Dates: start: 20080701, end: 20080715
  4. FILICINE [Concomitant]
     Indication: PREGNANCY
     Route: 048
     Dates: start: 20080601, end: 20080715
  5. REYATAZ [Concomitant]
     Indication: HIV INFECTION

REACTIONS (3)
  - ABORTION SPONTANEOUS [None]
  - DRUG EXPOSURE DURING PREGNANCY [None]
  - RASH [None]
